FAERS Safety Report 6183543-2 (Version None)
Quarter: 2009Q2

REPORT INFORMATION
  Report Type: 
  Country: None (occurrence: None)
  Receive Date: 20090508
  Receipt Date: 20090429
  Transmission Date: 20091009
  Serious: Yes (Disabling, Other)
  Sender: FDA-Public Use
  Company Number: GB-RANBAXY-2009RR-23833

PATIENT
  Age: 58 Year
  Weight: 60 kg

DRUGS (4)
  1. AMITRIPTLINE HYDROCHLORIDE TAB [Suspect]
     Indication: MYALGIA
     Dosage: 10 MG, QD
     Route: 048
     Dates: start: 20081204
  2. NITROFURANTOIN MONOHYDRATE/MACROCRYSTALS [Suspect]
     Indication: URINARY TRACT INFECTION
     Dosage: 100 MG, BID
     Route: 048
     Dates: start: 20090409, end: 20090411
  3. DICLOFENAC [Concomitant]
     Indication: MYALGIA
     Dosage: 50 MG, TID
     Route: 048
     Dates: start: 20031201
  4. LANSOPRAZOLE [Concomitant]
     Dosage: 30 MG, UNK
     Route: 048

REACTIONS (2)
  - INFLUENZA LIKE ILLNESS [None]
  - PALPITATIONS [None]
